FAERS Safety Report 4625183-X (Version None)
Quarter: 2005Q2

REPORT INFORMATION
  Report Type: 
  Country: None (occurrence: None)
  Receive Date: 20050401
  Receipt Date: 20050322
  Transmission Date: 20051028
  Serious: Yes (Other)
  Sender: FDA-Public Use
  Company Number: US-BRISTOL-MYERS SQUIBB COMPANY-12906822

PATIENT
  Age: 8 Year
  Sex: Female
  Weight: 36 kg

DRUGS (4)
  1. ABILIFY [Suspect]
     Indication: ABNORMAL BEHAVIOUR
     Dosage: 7.5 MG AM AND 7.5 MG PM
  2. ABILIFY [Suspect]
     Indication: CHROMOSOME ABNORMALITY
     Dosage: 7.5 MG AM AND 7.5 MG PM
  3. TOPAMAX [Concomitant]
  4. STRATTERA [Concomitant]

REACTIONS (5)
  - AGGRESSION [None]
  - AGITATION [None]
  - CONVULSION [None]
  - IRRITABILITY [None]
  - SELF INJURIOUS BEHAVIOUR [None]
